FAERS Safety Report 4592581-2 (Version None)
Quarter: 2005Q1

REPORT INFORMATION
  Report Type: 
  Country: None (occurrence: None)
  Receive Date: 20050228
  Receipt Date: 20050214
  Transmission Date: 20050727
  Serious: Yes (Hospitalization, Other)
  Sender: FDA-Public Use
  Company Number: 200511461GDDC

PATIENT
  Age: 79 Year
  Sex: Female

DRUGS (9)
  1. CALCITONIN-SALMON [Suspect]
     Indication: GASTROINTESTINAL DISORDER
     Dosage: DOSE UNIT: UNITS
     Route: 058
     Dates: start: 20050204
  2. PANTOPRAZOLE SODIUM [Concomitant]
     Dosage: DOSE: UNK
     Route: 048
     Dates: start: 20050204
  3. SENOKOT [Concomitant]
     Indication: CONSTIPATION
     Dosage: DOSE: UNK
     Route: 048
     Dates: start: 20050204
  4. MORPHINE [Concomitant]
     Indication: PAIN
     Dosage: DOSE: UNK
     Route: 048
  5. DOCUSATE [Concomitant]
     Indication: CONSTIPATION
     Dosage: DOSE: UNK
     Route: 048
  6. SODIUM PHOSPHATE [Concomitant]
     Dosage: DOSE: UNK
  7. LACTULOSE [Concomitant]
     Dosage: DOSE: UNK
  8. ALBUTEROL [Concomitant]
     Dosage: DOSE: UNK
  9. TYLENOL (CAPLET) [Concomitant]
     Dosage: DOSE: UNK

REACTIONS (5)
  - DEHYDRATION [None]
  - HYPOTENSION [None]
  - PNEUMONIA [None]
  - RENAL FAILURE ACUTE [None]
  - URINARY TRACT INFECTION [None]
